FAERS Safety Report 14273873 (Version 1)
Quarter: 2017Q4

REPORT INFORMATION
  Report Type: Spontaneous
  Country: JP (occurrence: JP)
  Receive Date: 20171211
  Receipt Date: 20171211
  Transmission Date: 20180321
  Serious: Yes (Life-Threatening, Congenital Anomaly, Other)
  Sender: FDA-Public Use
  Company Number: JP-OTSUKA-JP-2011-11680

PATIENT
  Age: 0 Day
  Sex: Male
  Weight: 1 kg

DRUGS (4)
  1. ABILIFY [Suspect]
     Active Substance: ARIPIPRAZOLE
     Indication: PRODUCT USED FOR UNKNOWN INDICATION
     Dosage: 12 MG, QD
     Route: 064
     Dates: end: 20110929
  2. AKIRIDEN [Concomitant]
     Active Substance: BIPERIDEN
     Indication: PRODUCT USED FOR UNKNOWN INDICATION
     Dosage: 2 MG, QD
     Route: 064
     Dates: end: 20110331
  3. LENDORMIN [Concomitant]
     Active Substance: BROTIZOLAM
     Indication: PRODUCT USED FOR UNKNOWN INDICATION
     Dosage: 0.25 MG, QD
     Route: 064
     Dates: end: 20110331
  4. AKIRIDEN [Concomitant]
     Active Substance: BIPERIDEN
     Dosage: 1 MG, QD
     Route: 064
     Dates: start: 20110401, end: 20110414

REACTIONS (10)
  - Ventricular septal defect [Unknown]
  - Congenital aortic valve stenosis [Unknown]
  - Pulmonary valve stenosis congenital [Unknown]
  - Congenital hand malformation [Unknown]
  - Premature baby [Unknown]
  - Congenital hydrocephalus [Unknown]
  - Pulmonary function test decreased [Unknown]
  - Foetal exposure during pregnancy [Unknown]
  - Cardiac arrest [Unknown]
  - Trisomy 18 [Not Recovered/Not Resolved]

NARRATIVE: CASE EVENT DATE: 20110929
